FAERS Safety Report 8457560 (Version 6)
Quarter: 2013Q1

REPORT INFORMATION
  Report Type: Spontaneous
  Country: US (occurrence: US)
  Receive Date: 20120314
  Receipt Date: 20130206
  Transmission Date: 20140127
  Serious: No
  Sender: FDA-Public Use
  Company Number: US-PFIZER INC-2012063386

PATIENT
  Age: 83 Year
  Sex: Female
  Weight: 36 kg

DRUGS (7)
  1. LYRICA [Suspect]
     Indication: FIBROMYALGIA
     Dosage: 50 MG, 1X/DAY (DAILY) (IN THE MORNING)
     Route: 048
     Dates: start: 201202
  2. LYRICA [Suspect]
     Indication: FIBROMYALGIA
     Dosage: 50 MG, 1X/DAY
  3. LYRICA [Suspect]
     Indication: PAIN IN EXTREMITY
     Dosage: 50 MG, UNK
  4. LYRICA [Suspect]
     Dosage: 50 MG, DAILY
  5. PHENOBARBITAL [Concomitant]
     Indication: EPILEPSY
     Dosage: 64.8 MG, 2X/DAY
  6. TYLENOL [Concomitant]
     Indication: HEADACHE
     Dosage: UNK, AS NEEDED
  7. RANITIDINE [Concomitant]
     Indication: GASTRIC ULCER
     Dosage: 150 MG, AS NEEDED

REACTIONS (11)
  - Drug ineffective [Unknown]
  - Feeling drunk [Recovered/Resolved]
  - Gait disturbance [Recovered/Resolved]
  - Dizziness [Not Recovered/Not Resolved]
  - Headache [Recovered/Resolved]
  - Disorientation [Recovered/Resolved]
  - Fall [Unknown]
  - Back injury [Unknown]
  - Limb injury [Unknown]
  - Feeling abnormal [Unknown]
  - Pain in extremity [Not Recovered/Not Resolved]
